FAERS Safety Report 7248703-8 (Version None)
Quarter: 2011Q1

REPORT INFORMATION
  Report Type: 
  Country: None (occurrence: None)
  Receive Date: 20110119
  Receipt Date: 20110119
  Transmission Date: 20110831
  Serious: Yes (Other)
  Sender: FDA-Public Use
  Company Number: None

PATIENT
  Sex: Male
  Weight: 112.4 kg

DRUGS (1)
  1. HEPARIN SODIUM [Suspect]
     Indication: CATHETERISATION CARDIAC
     Dosage: DURING PROCEDURE IV DRIP
     Route: 041
     Dates: start: 20110118, end: 20110118

REACTIONS (2)
  - PRODUCT QUALITY ISSUE [None]
  - THROMBOSIS [None]
